FAERS Safety Report 7042005-0 (Version None)
Quarter: 2010Q4

REPORT INFORMATION
  Report Type: 
  Country: None (occurrence: None)
  Receive Date: 20101013
  Receipt Date: 20091027
  Transmission Date: 20110411
  Serious: No
  Sender: FDA-Public Use
  Company Number: US-ASTRAZENECA-2009SE22817

PATIENT
  Age: 86 Year
  Sex: Female
  Weight: 43.1 kg

DRUGS (15)
  1. SYMBICORT [Suspect]
     Indication: CHRONIC OBSTRUCTIVE PULMONARY DISEASE
     Dosage: 2 PUFFS
     Route: 055
     Dates: start: 20090201
  2. PILOCARPINE HYDROCHLORIDE [Concomitant]
  3. MOVE FREE [Concomitant]
  4. SIMVASTATIN [Concomitant]
  5. VERAPAMIL [Concomitant]
  6. DIGOXIN [Concomitant]
  7. MULTI-VITAMINS [Concomitant]
  8. ASCORBIC ACID [Concomitant]
  9. CALCIUM [Concomitant]
  10. ASPIRIN [Concomitant]
  11. MUCULEX [Concomitant]
  12. ALPHAGAN [Concomitant]
  13. AZOPT [Concomitant]
  14. LUBRICAN [Concomitant]
  15. MEDICATION VIA NEBULIZER [Concomitant]

REACTIONS (7)
  - ARTHRALGIA [None]
  - DYSPHONIA [None]
  - GLAUCOMA [None]
  - MUSCLE SPASMS [None]
  - MUSCULOSKELETAL PAIN [None]
  - RHINORRHOEA [None]
  - VISION BLURRED [None]
